FAERS Safety Report 10040502 (Version 1)
Quarter: 2014Q1

REPORT INFORMATION
  Report Type: Report from Study
  Country: DE (occurrence: DE)
  Receive Date: 20140327
  Receipt Date: 20140327
  Transmission Date: 20141002
  Serious: Yes (Other)
  Sender: FDA-Public Use
  Company Number: DE-ABBVIE-14K-062-1215198-00

PATIENT
  Age: 59 Year
  Sex: Male

DRUGS (2)
  1. KALETRA [Suspect]
     Indication: HIV INFECTION
     Dates: start: 20011107
  2. TRUVADA [Concomitant]
     Indication: PRODUCT USED FOR UNKNOWN INDICATION

REACTIONS (2)
  - Myocardial infarction [Recovering/Resolving]
  - Coronary artery disease [Recovering/Resolving]
